FAERS Safety Report 5887324-6 (Version None)
Quarter: 2008Q3

REPORT INFORMATION
  Report Type: 
  Country: None (occurrence: None)
  Receive Date: 20080915
  Receipt Date: 20080904
  Transmission Date: 20090109
  Serious: Yes (Other)
  Sender: FDA-Public Use
  Company Number: 2008AP002298

PATIENT
  Age: 71 Year
  Sex: Male
  Weight: 68.0396 kg

DRUGS (6)
  1. GABAPENTIN [Suspect]
     Indication: NEURALGIA
     Dosage: 100 MG; QD; PO, 100 MG; BID; PO
     Route: 048
     Dates: end: 20080701
  2. GABAPENTIN [Suspect]
     Indication: NEURALGIA
     Dosage: 100 MG; QD; PO, 100 MG; BID; PO
     Route: 048
     Dates: start: 20080624
  3. DILTAZAEM [Concomitant]
  4. CHLORTHALIDONE [Concomitant]
  5. POTASSIUM CITRATE [Concomitant]
  6. OMEPRAZOLE [Concomitant]

REACTIONS (8)
  - AMNESIA [None]
  - BACK PAIN [None]
  - DIARRHOEA [None]
  - INFLUENZA LIKE ILLNESS [None]
  - MOOD ALTERED [None]
  - SPEECH DISORDER [None]
  - STOMACH DISCOMFORT [None]
  - SUICIDAL IDEATION [None]
